FAERS Safety Report 23579252 (Version 3)
Quarter: 2024Q2

REPORT INFORMATION
  Report Type: Spontaneous
  Country: CH (occurrence: CH)
  Receive Date: 20240229
  Receipt Date: 20240418
  Transmission Date: 20240715
  Serious: Yes (Other)
  Sender: FDA-Public Use
  Company Number: CH-SANOFI-01956003

PATIENT
  Age: 62 Year
  Sex: Male

DRUGS (19)
  1. TOUJEO [Suspect]
     Active Substance: INSULIN GLARGINE
     Indication: Type 2 diabetes mellitus
     Dosage: 14 U, QD
     Route: 058
     Dates: start: 20230904
  2. TOUJEO [Suspect]
     Active Substance: INSULIN GLARGINE
     Dosage: UNK UNK, QD; (CONTINUOUS REDUCTION TO 10 / 8 AND 6 UNITS DAILY)
  3. TOUJEO [Suspect]
     Active Substance: INSULIN GLARGINE
     Dosage: UNK
     Dates: start: 20240221, end: 20240225
  4. DULOXETIN SANDOZ [Concomitant]
     Dosage: UNK UNK, QD (8:15)
  5. OXYCODONE [Concomitant]
     Active Substance: OXYCODONE\OXYCODONE HYDROCHLORIDE
  6. NALOXONE HYDROCHLORIDE [Concomitant]
     Active Substance: NALOXONE HYDROCHLORIDE
  7. EDARBYCLOR [Concomitant]
     Active Substance: AZILSARTAN KAMEDOXOMIL\CHLORTHALIDONE
     Dosage: UNK UNK, QD (0.5)
  8. TILUR [Concomitant]
     Active Substance: ACEMETACIN
     Dosage: UNK UNK, BID
  9. JARDIANCE [Concomitant]
     Active Substance: EMPAGLIFLOZIN
     Dosage: UNK UNK, QD
  10. ASPIRIN [Concomitant]
     Active Substance: ASPIRIN
     Dosage: UNK UNK, QD
  11. SODIUM CHONDROITIN SULFATE [Concomitant]
     Active Substance: SODIUM CHONDROITIN SULFATE
     Dosage: UNK UNK, QD
  12. NEBIVOLOL [Concomitant]
     Active Substance: NEBIVOLOL
     Dosage: UNK UNK, QD
  13. ESOMEPRAZOLE [Concomitant]
     Active Substance: ESOMEPRAZOLE
     Dosage: UNK UNK, QD
  14. VILDAGLIPTIN [Concomitant]
     Active Substance: VILDAGLIPTIN
     Dosage: UNK UNK, BID
  15. NOVORAPID [Concomitant]
     Active Substance: INSULIN ASPART
     Dosage: UNK UNK, TID
  16. DYMISTA [Concomitant]
     Active Substance: AZELASTINE HYDROCHLORIDE\FLUTICASONE PROPIONATE
     Dosage: UNK UNK, PRN (AT NIGHT AS NEEDED)
  17. BENZOYL PEROXIDE\SULFUR [Concomitant]
     Active Substance: BENZOYL PEROXIDE\SULFUR
     Dosage: UNK UNK, BID
  18. CARBOMER [Concomitant]
     Active Substance: CARBOMER
     Dosage: IRREGULAR
  19. DAFALGAN [Concomitant]
     Active Substance: ACETAMINOPHEN
     Dosage: UNK UNK, PRN

REACTIONS (14)
  - Fatigue [Recovered/Resolved]
  - Insomnia [Recovered/Resolved]
  - Chest pain [Recovered/Resolved]
  - Blood pressure systolic decreased [Recovered/Resolved]
  - Condition aggravated [Recovered/Resolved]
  - Ocular icterus [Recovered/Resolved]
  - Hypertension [Unknown]
  - Red blood cell count increased [Recovered/Resolved]
  - Haemoglobin increased [Recovered/Resolved]
  - Haematocrit increased [Recovered/Resolved]
  - Differential white blood cell count abnormal [Recovered/Resolved]
  - Alanine aminotransferase increased [Recovered/Resolved]
  - Glomerular filtration rate decreased [Recovered/Resolved]
  - Pruritus [Recovered/Resolved]

NARRATIVE: CASE EVENT DATE: 20230904
